APPROVED DRUG PRODUCT: ICOSAPENT ETHYL
Active Ingredient: ICOSAPENT ETHYL
Strength: 500MG
Dosage Form/Route: CAPSULE;ORAL
Application: A217844 | Product #001 | TE Code: AB
Applicant: ONESOURCE SPECIALTY PTE LTD
Approved: Sep 22, 2023 | RLD: No | RS: No | Type: RX